FAERS Safety Report 8699058 (Version 4)
Quarter: 2013Q1

REPORT INFORMATION
  Report Type: Report from Study
  Country: US (occurrence: US)
  Receive Date: 20120802
  Receipt Date: 20130129
  Transmission Date: 20140127
  Serious: Yes (Hospitalization)
  Sender: FDA-Public Use
  Company Number: US-ABBOTT-12P-163-0961528-00

PATIENT
  Age: 41 None
  Sex: Female
  Weight: 109.87 kg

DRUGS (4)
  1. HUMIRA [Suspect]
     Indication: CROHN^S DISEASE
     Dates: start: 2010
  2. ZOFRAN [Concomitant]
     Dates: start: 2012
  3. SINGULAIR [Concomitant]
     Indication: PRODUCT USED FOR UNKNOWN INDICATION
  4. VERAMYST [Concomitant]
     Indication: PRODUCT USED FOR UNKNOWN INDICATION
     Dosage: SPRAY

REACTIONS (4)
  - Small intestinal obstruction [Unknown]
  - Sensory loss [Not Recovered/Not Resolved]
  - Intestinal perforation [Unknown]
  - Crohn^s disease [Not Recovered/Not Resolved]
